FAERS Safety Report 8792727 (Version 1)
Quarter: 2012Q4

REPORT INFORMATION
  Report Type: 
  Country: FR (occurrence: FR)
  Receive Date: 20120918
  Receipt Date: 20120918
  Transmission Date: 20130627
  Serious: Yes (Hospitalization)
  Sender: FDA-Public Use
  Company Number: FR-GLAXOSMITHKLINE-B0690532A

PATIENT
  Age: 56 None
  Sex: Male

DRUGS (10)
  1. AUGMENTIN [Suspect]
     Indication: PRODUCT USED FOR UNKNOWN INDICATION
     Dosage: 3G Unknown
     Route: 048
     Dates: start: 20100309, end: 20100330
  2. INEXIUM [Suspect]
     Indication: PRODUCT USED FOR UNKNOWN INDICATION
     Dosage: 20MG Per day
     Route: 048
     Dates: start: 201002, end: 20100330
  3. TRIFLUCAN [Concomitant]
     Indication: PRODUCT USED FOR UNKNOWN INDICATION
     Dosage: 200MG Twice per day
     Route: 048
     Dates: start: 20100309, end: 20100330
  4. ORACILLINE [Concomitant]
     Indication: PRODUCT USED FOR UNKNOWN INDICATION
     Dosage: 1UNIT Per day
     Route: 048
     Dates: start: 200909, end: 20100330
  5. ZELITREX [Concomitant]
     Indication: PRODUCT USED FOR UNKNOWN INDICATION
     Dosage: 500MG Twice per day
     Route: 048
     Dates: start: 20100309
  6. VFEND [Concomitant]
     Indication: PRODUCT USED FOR UNKNOWN INDICATION
     Route: 065
     Dates: start: 20100325, end: 20100330
  7. VANCOMYCINE [Concomitant]
     Indication: FEBRILE BONE MARROW APLASIA
     Route: 065
     Dates: start: 20100321, end: 20100327
  8. CIFLOX [Concomitant]
     Indication: FEBRILE BONE MARROW APLASIA
     Route: 065
     Dates: start: 20100321, end: 20100327
  9. TAZOCILLINE [Concomitant]
     Indication: FEBRILE BONE MARROW APLASIA
     Route: 065
     Dates: start: 20100321, end: 20100327
  10. TIENAM [Concomitant]
     Indication: FEBRILE BONE MARROW APLASIA
     Route: 065
     Dates: start: 20100321, end: 20100327

REACTIONS (5)
  - Stevens-Johnson syndrome [Recovered/Resolved with Sequelae]
  - Skin test negative [Unknown]
  - Conjunctivitis infective [Recovered/Resolved with Sequelae]
  - Toxic skin eruption [Recovered/Resolved with Sequelae]
  - Erythema multiforme [Recovered/Resolved with Sequelae]
